FAERS Safety Report 8398490-5 (Version None)
Quarter: 2012Q2

REPORT INFORMATION
  Report Type: 
  Country: None (occurrence: None)
  Receive Date: 20120531
  Receipt Date: 20120525
  Transmission Date: 20120825
  Serious: Yes (Other)
  Sender: FDA-Public Use
  Company Number: US-PFIZER INC-2012127450

PATIENT
  Sex: Male

DRUGS (4)
  1. LISINOPRIL [Concomitant]
     Dosage: 40 MG, UNK
  2. METFORMIN [Concomitant]
     Dosage: 500 MG, UNK
  3. MULTIVITAMIN [Concomitant]
     Dosage: UNK
  4. GENOTROPIN [Suspect]
     Dosage: 0.8 MG, DAILY
     Route: 058

REACTIONS (1)
  - DIABETES MELLITUS [None]
